FAERS Safety Report 17565205 (Version 2)
Quarter: 2020Q2

REPORT INFORMATION
  Report Type: Spontaneous
  Country: US (occurrence: US)
  Receive Date: 20200320
  Receipt Date: 20200408
  Transmission Date: 20200713
  Serious: Yes (Hospitalization, Other)
  Sender: FDA-Public Use
  Company Number: US-ACCORD-176586

PATIENT
  Age: 55 Year
  Sex: Male

DRUGS (2)
  1. MYCOPHENOLIC ACID. [Suspect]
     Active Substance: MYCOPHENOLIC ACID
     Indication: DERMATOMYOSITIS
     Dosage: TWICE DAILY
  2. PREDNISONE. [Suspect]
     Active Substance: PREDNISONE
     Indication: DERMATOMYOSITIS
     Route: 048

REACTIONS (5)
  - Muscle abscess [Recovered/Resolved]
  - Vasculitis necrotising [Recovered/Resolved]
  - Cutaneous tuberculosis [Recovered/Resolved]
  - Off label use [Unknown]
  - Disseminated tuberculosis [Recovered/Resolved]
